FAERS Safety Report 10211507 (Version 1)
Quarter: 2014Q2

REPORT INFORMATION
  Report Type: Spontaneous
  Country: US (occurrence: US)
  Receive Date: 20140602
  Receipt Date: 20140602
  Transmission Date: 20141212
  Serious: Yes (Life-Threatening, Hospitalization)
  Sender: FDA-Public Use
  Company Number: US-ACTAVIS-2014-11791

PATIENT
  Age: 56 Year
  Sex: Male

DRUGS (6)
  1. METOPROLOL (WATSON LABORATORIES) [Suspect]
     Indication: SUICIDE ATTEMPT
     Dosage: 500 MG, UNKNOWN
     Route: 065
  2. FUROSEMIDE (WATSON LABORATORIES) [Suspect]
     Indication: SUICIDE ATTEMPT
     Dosage: {5 FUROSEMIDE TABLETS OF UNKNOWN STRENGTH
     Route: 065
  3. LISINOPRIL (WATSON LABORATORIES) [Suspect]
     Indication: SUICIDE ATTEMPT
     Dosage: {5 LISINOPRIL TABLETS OF UNKNOWN STRENGTH
  4. ISOSORBIDE DINITRATE (UNKNOWN) [Suspect]
     Indication: SUICIDE ATTEMPT
     Dosage: {5 ISOSORBIDE NITRATE TABLETS OF UNKNOWN STRENGTH
     Route: 065
  5. DIPHENHYDRAMINE (WATSON LABORATORIES) [Suspect]
     Indication: SUICIDE ATTEMPT
     Dosage: 1.2 G, UNKNOWN
     Route: 065
  6. INSULIN GLARGINE [Suspect]
     Indication: SUICIDE ATTEMPT
     Dosage: 3300 IU, UNKNOWN

REACTIONS (7)
  - Hypoglycaemia [Recovering/Resolving]
  - Hypotension [Unknown]
  - Heart rate decreased [Unknown]
  - Somnolence [Unknown]
  - Suicide attempt [Unknown]
  - Overdose [Recovering/Resolving]
  - Intentional overdose [None]
